FAERS Safety Report 13861506 (Version 12)
Quarter: 2020Q1

REPORT INFORMATION
  Report Type: Report from Study
  Country: DE (occurrence: DE)
  Receive Date: 20170811
  Receipt Date: 20200302
  Transmission Date: 20200409
  Serious: Yes (Death, Hospitalization, Other)
  Sender: FDA-Public Use
  Company Number: DE-BRISTOL-MYERS SQUIBB COMPANY-BMS-2017-061135

PATIENT
  Age: 82 Year
  Sex: Male

DRUGS (9)
  1. NIVOLUMAB [Suspect]
     Active Substance: NIVOLUMAB
     Indication: NON-SMALL CELL LUNG CANCER
     Dosage: 3 MILLIGRAM/KILOGRAM, Q2WK
     Route: 042
     Dates: start: 20170703, end: 20170717
  2. ISMN [Concomitant]
     Active Substance: ISOSORBIDE MONONITRATE
     Indication: CEREBROVASCULAR DISORDER
     Dosage: 20 MILLIGRAM
     Route: 065
  3. MEROPENEM. [Concomitant]
     Active Substance: MEROPENEM
     Indication: PROPHYLAXIS
     Dosage: 3 GRAM
     Route: 065
     Dates: start: 20170726, end: 20170730
  4. TAZOBAC [Concomitant]
     Active Substance: PIPERACILLIN SODIUM\TAZOBACTAM SODIUM
     Indication: PROPHYLAXIS
     Dosage: 13.5 MILLIGRAM
     Route: 065
     Dates: start: 20170718, end: 20170724
  5. MORPHINE [Concomitant]
     Active Substance: MORPHINE
     Indication: MALIGNANT NEOPLASM PROGRESSION
     Dosage: UNK
     Route: 065
     Dates: start: 20170618
  6. CLEXANE [Concomitant]
     Active Substance: ENOXAPARIN SODIUM
     Indication: PROPHYLAXIS
     Dosage: 0.4 MILLIGRAM
     Route: 065
     Dates: start: 20170708, end: 20170802
  7. GLIMEPIRID [Concomitant]
     Active Substance: GLIMEPIRIDE
     Indication: METABOLIC DISORDER
     Dosage: 0.5 MILLIGRAM
     Route: 065
  8. NOVALGIN [CAFFEINE;PARACETAMOL;PROPYPHENAZONE] [Concomitant]
     Active Substance: ACETAMINOPHEN\CAFFEINE\PROPYPHENAZONE
     Indication: MALIGNANT NEOPLASM PROGRESSION
     Dosage: 4 MILLIGRAM
     Route: 065
     Dates: start: 20170708
  9. GODAMED [Concomitant]
     Active Substance: ASPIRIN
     Indication: MALIGNANT NEOPLASM PROGRESSION
     Dosage: 100 MILLIGRAM
     Route: 065

REACTIONS (13)
  - Diarrhoea [Recovered/Resolved]
  - General physical health deterioration [Not Recovered/Not Resolved]
  - Oesophagitis [Not Recovered/Not Resolved]
  - Constipation [Not Recovered/Not Resolved]
  - Vomiting [Not Recovered/Not Resolved]
  - Blood potassium decreased [Not Recovered/Not Resolved]
  - Hypertension [Recovered/Resolved]
  - Gastrooesophageal reflux disease [Not Recovered/Not Resolved]
  - Malignant neoplasm progression [Fatal]
  - Anxiety [Not Recovered/Not Resolved]
  - Haemoglobin decreased [Not Recovered/Not Resolved]
  - Hypertensive crisis [Recovered/Resolved]
  - Oedema [Not Recovered/Not Resolved]

NARRATIVE: CASE EVENT DATE: 20170707
